FAERS Safety Report 11431196 (Version 1)
Quarter: 2015Q3

REPORT INFORMATION
  Report Type: Spontaneous
  Country: US (occurrence: US)
  Receive Date: 20150828
  Receipt Date: 20150828
  Transmission Date: 20151125
  Serious: No
  Sender: FDA-Public Use
  Company Number: US-ROCHE-1146206

PATIENT
  Age: 59 Year
  Sex: Female

DRUGS (6)
  1. RIBASPHERE [Suspect]
     Active Substance: RIBAVIRIN
     Dosage: DIVIDED DOSE 400/200
     Route: 048
  2. RIBASPHERE [Suspect]
     Active Substance: RIBAVIRIN
     Route: 048
     Dates: start: 20121015
  3. FLUOXETINE [Concomitant]
     Active Substance: FLUOXETINE\FLUOXETINE HYDROCHLORIDE
     Route: 065
  4. RIBASPHERE [Suspect]
     Active Substance: RIBAVIRIN
     Indication: CHRONIC HEPATITIS C
     Dosage: DIVIDED DOSES 400/600
     Route: 048
     Dates: start: 20120917
  5. PEGASYS [Suspect]
     Active Substance: PEGINTERFERON ALFA-2A
     Indication: CHRONIC HEPATITIS C
     Route: 058
     Dates: start: 20120917
  6. TELAPREVIR [Suspect]
     Active Substance: TELAPREVIR
     Indication: CHRONIC HEPATITIS C
     Route: 065
     Dates: start: 20120917

REACTIONS (19)
  - Contusion [Unknown]
  - Back pain [Unknown]
  - Malaise [Unknown]
  - Dry skin [Unknown]
  - Cellulitis [Unknown]
  - Cheilitis [Unknown]
  - Emotional distress [Unknown]
  - Gait disturbance [Unknown]
  - Skin fissures [Unknown]
  - Fatigue [Unknown]
  - Nausea [Unknown]
  - Fall [Unknown]
  - Feeling abnormal [Unknown]
  - Rash [Recovering/Resolving]
  - Urine abnormality [Unknown]
  - Anaemia [Unknown]
  - Weight decreased [Unknown]
  - Respiratory tract congestion [Unknown]
  - Depressed mood [Unknown]

NARRATIVE: CASE EVENT DATE: 20121127
